FAERS Safety Report 13023991 (Version 4)
Quarter: 2019Q2

REPORT INFORMATION
  Report Type: Spontaneous
  Country: GB (occurrence: GB)
  Receive Date: 20161213
  Receipt Date: 20190611
  Transmission Date: 20190711
  Serious: Yes (Hospitalization)
  Sender: FDA-Public Use
  Company Number: GB-MYLANLABS-2016M1054622

PATIENT
  Sex: Female

DRUGS (1)
  1. CLOZARIL [Suspect]
     Active Substance: CLOZAPINE
     Indication: SCHIZOPHRENIA
     Dosage: UNK
     Route: 048
     Dates: start: 20141105

REACTIONS (5)
  - Respiratory failure [Unknown]
  - Skin ulcer [Unknown]
  - Supraventricular tachycardia [Unknown]
  - Hospitalisation [Unknown]
  - Sepsis [Unknown]

NARRATIVE: CASE EVENT DATE: 201612
